FAERS Safety Report 6144323-7 (Version None)
Quarter: 2009Q2

REPORT INFORMATION
  Report Type: 
  Country: None (occurrence: None)
  Receive Date: 20090401
  Receipt Date: 20090320
  Transmission Date: 20091009
  Serious: Yes (Death, Hospitalization, Other)
  Sender: FDA-Public Use
  Company Number: 2009S1000005

PATIENT
  Age: 60 Year
  Sex: Male

DRUGS (1)
  1. CUBICIN [Suspect]
     Indication: ENDOCARDITIS STAPHYLOCOCCAL
     Dosage: 480 MG;Q24H;IV
     Route: 042
     Dates: start: 20060303, end: 20060311

REACTIONS (10)
  - ACUTE MYOCARDIAL INFARCTION [None]
  - ARTERIOSCLEROSIS CORONARY ARTERY [None]
  - BLOOD CREATINE PHOSPHOKINASE INCREASED [None]
  - CARDIAC PROCEDURE COMPLICATION [None]
  - INCORRECT DRUG ADMINISTRATION DURATION [None]
  - LEFT VENTRICULAR HYPERTROPHY [None]
  - MYOCARDIAC ABSCESS [None]
  - MYOCARDIAL ISCHAEMIA [None]
  - SUDDEN DEATH [None]
  - VASCULAR GRAFT [None]
